FAERS Safety Report 14835679 (Version 3)
Quarter: 2018Q3

REPORT INFORMATION
  Report Type: Spontaneous
  Country: FR (occurrence: FR)
  Receive Date: 20180502
  Receipt Date: 20180813
  Transmission Date: 20181010
  Serious: Yes (Hospitalization)
  Sender: FDA-Public Use
  Company Number: FR-TEVA-2018-FR-886307

PATIENT
  Age: 62 Year
  Sex: Female
  Weight: 54 kg

DRUGS (7)
  1. UROMITEXAN [Suspect]
     Active Substance: MESNA
     Indication: CHEMOTHERAPY UROTHELIAL TOXICITY ATTENUATION
     Dosage: 4560 MILLIGRAM DAILY;
     Route: 042
     Dates: start: 20171228, end: 20171229
  2. ONDANSETRON [Suspect]
     Active Substance: ONDANSETRON
     Indication: PREMEDICATION
     Route: 042
     Dates: start: 20171228, end: 20171228
  3. MACROGOL BIOGARAN [Suspect]
     Active Substance: POLYETHYLENE GLYCOLS
     Indication: CONSTIPATION
     Dosage: 1 DOSAGE FORMS DAILY;
     Route: 048
     Dates: end: 20180101
  4. BISOPROLOL (FUMARATE ACIDE DE) [Suspect]
     Active Substance: BISOPROLOL FUMARATE
     Indication: PRODUCT USED FOR UNKNOWN INDICATION
     Dosage: 2.5 MILLIGRAM DAILY;
     Route: 048
     Dates: end: 20180107
  5. METHYLPREDNISOLONE. [Suspect]
     Active Substance: METHYLPREDNISOLONE
     Indication: PREMEDICATION
     Route: 042
     Dates: start: 20171228, end: 20171228
  6. PANTOPRAZOLE [Suspect]
     Active Substance: PANTOPRAZOLE
     Indication: PRODUCT USED FOR UNKNOWN INDICATION
     Dosage: 20 MILLIGRAM DAILY;
     Route: 048
     Dates: end: 20180101
  7. IFOSFAMIDE. [Suspect]
     Active Substance: IFOSFAMIDE
     Indication: UTERINE LEIOMYOSARCOMA
     Dosage: 4560 MILLIGRAM DAILY;
     Route: 042
     Dates: start: 20171228, end: 20171229

REACTIONS (2)
  - Febrile bone marrow aplasia [Recovering/Resolving]
  - Acute kidney injury [Recovering/Resolving]

NARRATIVE: CASE EVENT DATE: 20180107
